FAERS Safety Report 8476793-3 (Version None)
Quarter: 2012Q2

REPORT INFORMATION
  Report Type: 
  Country: None (occurrence: None)
  Receive Date: 20120628
  Receipt Date: 20120625
  Transmission Date: 20120825
  Serious: Yes (Hospitalization)
  Sender: FDA-Public Use
  Company Number: RO-ROCHE-1076470

PATIENT
  Sex: Female
  Weight: 68 kg

DRUGS (5)
  1. MABTHERA [Suspect]
     Indication: RHEUMATOID ARTHRITIS
     Route: 042
     Dates: start: 20120207
  2. MABTHERA [Suspect]
     Route: 042
     Dates: start: 20120305
  3. IBUPROFEN [Concomitant]
     Indication: INFLUENZA
     Route: 048
     Dates: start: 20120222, end: 20120224
  4. METHOTREXATE [Concomitant]
     Indication: RHEUMATOID ARTHRITIS
     Route: 058
     Dates: start: 20081212
  5. AZITHROMYCIN [Concomitant]
     Indication: INFLUENZA
     Route: 048
     Dates: start: 20120222, end: 20120224

REACTIONS (1)
  - IDIOPATHIC THROMBOCYTOPENIC PURPURA [None]
